FAERS Safety Report 4946450-6 (Version None)
Quarter: 2006Q1

REPORT INFORMATION
  Report Type: 
  Country: None (occurrence: None)
  Receive Date: 20060317
  Receipt Date: 20060313
  Transmission Date: 20060701
  Serious: Yes (Disabling, Other)
  Sender: FDA-Public Use
  Company Number: PHFR2006GB01141

PATIENT
  Age: 42 Year
  Sex: Male
  Weight: 90 kg

DRUGS (4)
  1. AMITRIPTYLINE HCL [Concomitant]
     Indication: PAIN
     Dosage: 25 MG, QID
     Route: 048
     Dates: start: 20040101
  2. PREGABALIN [Concomitant]
     Indication: PAIN
     Dosage: 200 MG, TID
     Route: 048
     Dates: start: 20050101
  3. NAPROXEN [Concomitant]
     Indication: PAIN
     Dosage: 500 MG, BID
     Route: 048
     Dates: start: 20040101
  4. CARBAMAZEPINE [Suspect]
     Indication: PAIN
     Dosage: 300 MG/DAY
     Route: 048
     Dates: start: 20051102, end: 20060127

REACTIONS (8)
  - ASTHENIA [None]
  - INFLUENZA LIKE ILLNESS [None]
  - LIVER FUNCTION TEST ABNORMAL [None]
  - MOUTH ULCERATION [None]
  - MUSCLE SPASMS [None]
  - PRURITUS GENERALISED [None]
  - PYREXIA [None]
  - RASH MACULO-PAPULAR [None]
